FAERS Safety Report 14667603 (Version 1)
Quarter: 2018Q1

REPORT INFORMATION
  Report Type: Report from Study
  Country: US (occurrence: US)
  Receive Date: 20180322
  Receipt Date: 20180322
  Transmission Date: 20180509
  Serious: Yes (Other)
  Sender: FDA-Public Use
  Company Number: US-ROCHE-2091554

PATIENT

DRUGS (16)
  1. PEPCID (UNITED STATES) [Concomitant]
     Route: 042
     Dates: start: 20150203, end: 20150205
  2. OBINUTUZUMAB. [Suspect]
     Active Substance: OBINUTUZUMAB
     Indication: CHRONIC LYMPHOCYTIC LEUKAEMIA
     Dosage: INFUSION (CYCLE 1 DAY 1 (C1D1): 100 MG, C1D2: 900 MG, C1 D8 AND D15 1000 MG FOLLOWED BY 1000 MG ON C
     Route: 042
  3. ACYCLOVIR. [Concomitant]
     Active Substance: ACYCLOVIR
     Route: 048
     Dates: start: 20141210, end: 20150630
  4. SEPTRA DS [Concomitant]
     Active Substance: SULFAMETHOXAZOLE\TRIMETHOPRIM
     Route: 048
     Dates: start: 20141211, end: 20150630
  5. DIFLUCAN [Concomitant]
     Active Substance: FLUCONAZOLE
     Route: 048
     Dates: start: 20141214, end: 20150630
  6. PEPCID (UNITED STATES) [Concomitant]
     Route: 042
     Dates: start: 20150106, end: 20150108
  7. ALLOPURINOL. [Concomitant]
     Active Substance: ALLOPURINOL
     Route: 048
     Dates: start: 20141207, end: 20150303
  8. ALLEGRA [Concomitant]
     Active Substance: FEXOFENADINE HYDROCHLORIDE
     Indication: URTICARIA
     Route: 048
     Dates: start: 20141119
  9. OBINUTUZUMAB. [Suspect]
     Active Substance: OBINUTUZUMAB
     Dosage: C6D1 ON 28/APR/2015
     Route: 042
  10. METHYLPREDNISOLONE. [Suspect]
     Active Substance: METHYLPREDNISOLONE
     Indication: CHRONIC LYMPHOCYTIC LEUKAEMIA
     Dosage: (1000 MG/M2 FROM DAYS 1-3 IN 28 DAYS CYCLE FOR 1-4 CYCLES: AS PER PROTOCOL)
     Route: 042
  11. COUMADIN [Concomitant]
     Active Substance: WARFARIN SODIUM
     Dosage: 1/2 TABLET DAILY EXCEPT 1 TABLET WEDNESDAY AND SUNDAY
     Route: 048
     Dates: start: 20141008
  12. ATARAX [Concomitant]
     Active Substance: HYDROXYZINE HYDROCHLORIDE
     Indication: URTICARIA
     Route: 048
     Dates: start: 20141119
  13. CLOBETASOL PROPIONATE. [Concomitant]
     Active Substance: CLOBETASOL PROPIONATE
     Indication: RASH
     Route: 061
     Dates: start: 20140926, end: 20150402
  14. HYDROCORTISONE CREME [Concomitant]
     Indication: PRURITUS
     Route: 061
     Dates: start: 20150402, end: 20150717
  15. PEPCID (UNITED STATES) [Concomitant]
     Indication: RASH
     Route: 042
     Dates: start: 20150303, end: 20150305
  16. PEPCID (UNITED STATES) [Concomitant]
     Route: 042
     Dates: start: 20141210, end: 20141212

REACTIONS (5)
  - Neutropenia [Recovered/Resolved]
  - Hypokalaemia [Recovered/Resolved]
  - International normalised ratio increased [Recovered/Resolved]
  - Neutropenia [Recovered/Resolved]
  - Hypophosphataemia [Recovered/Resolved]

NARRATIVE: CASE EVENT DATE: 20141202
